FAERS Safety Report 6222247-4 (Version None)
Quarter: 2009Q2

REPORT INFORMATION
  Report Type: 
  Country: None (occurrence: None)
  Receive Date: 20090611
  Receipt Date: 20090608
  Transmission Date: 20091009
  Serious: Yes (Hospitalization)
  Sender: FDA-Public Use
  Company Number: NZ-ASTRAZENECA-2009SE02318

PATIENT
  Age: 839 Month
  Sex: Female

DRUGS (5)
  1. LOSEC [Suspect]
     Route: 048
     Dates: start: 19980401, end: 19981113
  2. ENALAPRIL [Concomitant]
     Route: 048
     Dates: start: 19890101, end: 19981111
  3. PHENYTOIN [Concomitant]
     Route: 048
     Dates: start: 19790101, end: 19981113
  4. BEZAFIBRATE [Concomitant]
     Route: 048
     Dates: start: 19930101, end: 19981028
  5. QUICKEZE [Concomitant]
     Route: 048

REACTIONS (4)
  - HYPERHIDROSIS [None]
  - PYREXIA [None]
  - RED BLOOD CELL SEDIMENTATION RATE INCREASED [None]
  - RENAL IMPAIRMENT [None]
